FAERS Safety Report 8885765 (Version 2)
Quarter: 2012Q4

REPORT INFORMATION
  Report Type: 
  Country: US (occurrence: US)
  Receive Date: 20121101
  Receipt Date: 20121213
  Transmission Date: 20130627
  Serious: Yes (Other)
  Sender: FDA-Public Use
  Company Number: US-PFIZER INC-2012269555

PATIENT
  Age: 60 Year
  Sex: Female
  Weight: 79.37 kg

DRUGS (6)
  1. CELEBREX [Suspect]
     Indication: DEGENERATIVE JOINT DISEASE
     Dosage: 200 mg, 1x/day (one a day, life time)
     Route: 048
  2. CELEBREX [Suspect]
     Indication: INTERVERTEBRAL DISC DISORDER
  3. NOVOLOG [Concomitant]
     Indication: DIABETES
     Dosage: 17 IU, 2x/day
  4. LANTUS [Concomitant]
     Indication: DIABETES
     Dosage: 40 IU, daily
  5. METFORMIN [Concomitant]
     Indication: DIABETES
     Dosage: 1000 mg, 2x/day
  6. DIOVAN HCT [Concomitant]
     Indication: BLOOD PRESSURE ABNORMAL
     Dosage: 160/12.5 mg, daily

REACTIONS (1)
  - Neurostimulator implantation [Unknown]
